FAERS Safety Report 9050987 (Version 1)
Quarter: 2013Q1

REPORT INFORMATION
  Report Type: Spontaneous
  Country: US (occurrence: US)
  Receive Date: 20130205
  Receipt Date: 20130205
  Transmission Date: 20140127
  Serious: Yes (Other)
  Sender: FDA-Public Use
  Company Number: US-PFIZER INC-2013040847

PATIENT
  Age: 66 Year
  Sex: Female
  Weight: 72.56 kg

DRUGS (3)
  1. PREMARIN VAGINAL CREAM [Suspect]
     Indication: HORMONE REPLACEMENT THERAPY
     Dosage: 0.5 G, 2X/WEEK
     Route: 067
  2. ALPRAZOLAM [Suspect]
     Dosage: 10 MG, 2X/DAY
  3. XANAX [Concomitant]
     Indication: HYPERTENSION
     Dosage: 10 MG, 2X/DAY

REACTIONS (1)
  - Blood pressure increased [Unknown]
